FAERS Safety Report 7298280-0 (Version None)
Quarter: 2011Q1

REPORT INFORMATION
  Report Type: 
  Country: None (occurrence: None)
  Receive Date: 20110217
  Receipt Date: 20100409
  Transmission Date: 20110831
  Serious: No
  Sender: FDA-Public Use
  Company Number: US-PFIZER INC-2010045610

PATIENT
  Sex: Male

DRUGS (2)
  1. XALATAN [Suspect]
     Indication: GLAUCOMA
     Dosage: UNK
     Route: 047
  2. AZOPT [Concomitant]
     Dosage: UNK
     Route: 047

REACTIONS (2)
  - DRUG DOSE OMISSION [None]
  - INTRAOCULAR PRESSURE INCREASED [None]
